FAERS Safety Report 25902333 (Version 1)
Quarter: 2025Q4

REPORT INFORMATION
  Report Type: Spontaneous
  Country: VE (occurrence: VE)
  Receive Date: 20251009
  Receipt Date: 20251009
  Transmission Date: 20260117
  Serious: Yes (Other)
  Sender: NOVARTIS
  Company Number: VE-002147023-NVSC2025VE156752

PATIENT
  Sex: Female

DRUGS (1)
  1. GLIVEC [Suspect]
     Active Substance: IMATINIB MESYLATE
     Indication: Chronic myeloid leukaemia
     Dosage: 400 MG (4X 100MG)
     Route: 065

REACTIONS (3)
  - Cerebrovascular accident [Unknown]
  - Illness [Unknown]
  - Haemoglobin decreased [Unknown]
